FAERS Safety Report 12949927 (Version 1)
Quarter: 2016Q4

REPORT INFORMATION
  Report Type: Spontaneous
  Country: US (occurrence: US)
  Receive Date: 20161116
  Receipt Date: 20161116
  Transmission Date: 20170207
  Serious: Yes (Disabling)
  Sender: FDA-Public Use
  Company Number: None

PATIENT
  Age: 59 Year
  Sex: Female
  Weight: 58.5 kg

DRUGS (1)
  1. DEPO-MEDROL [Suspect]
     Active Substance: METHYLPREDNISOLONE ACETATE
     Indication: MYALGIA
     Dates: start: 20160928, end: 20160928

REACTIONS (7)
  - Back pain [None]
  - Cystitis [None]
  - Muscle spasms [None]
  - Nausea [None]
  - Product contamination [None]
  - Injection site pain [None]
  - Therapy non-responder [None]

NARRATIVE: CASE EVENT DATE: 20160928
